FAERS Safety Report 19026100 (Version 1)
Quarter: 2021Q1

REPORT INFORMATION
  Report Type: Spontaneous
  Country: US (occurrence: US)
  Receive Date: 20210318
  Receipt Date: 20210318
  Transmission Date: 20210420
  Serious: Yes (Hospitalization)
  Sender: FDA-Public Use
  Company Number: None

PATIENT
  Age: 69 Year
  Sex: Female

DRUGS (18)
  1. BUPROPION. [Concomitant]
     Active Substance: BUPROPION
  2. IPRATROPIUM [Concomitant]
     Active Substance: IPRATROPIUM
  3. CARVEDILOL. [Concomitant]
     Active Substance: CARVEDILOL
  4. DOXYCYCLINE. [Concomitant]
     Active Substance: DOXYCYCLINE
  5. FUROSEMIDE. [Concomitant]
     Active Substance: FUROSEMIDE
  6. LORATADINE. [Concomitant]
     Active Substance: LORATADINE
  7. CLOPIDOGREL [Concomitant]
     Active Substance: CLOPIDOGREL BISULFATE
  8. ALBUTEROL. [Concomitant]
     Active Substance: ALBUTEROL
  9. ALLOPURINOL. [Concomitant]
     Active Substance: ALLOPURINOL
  10. MONTELUKAST [Concomitant]
     Active Substance: MONTELUKAST SODIUM
  11. SYMBICORT [Concomitant]
     Active Substance: BUDESONIDE\FORMOTEROL FUMARATE DIHYDRATE
  12. ARIPIPRAZOLE. [Concomitant]
     Active Substance: ARIPIPRAZOLE
  13. SULFASALAZINE. [Concomitant]
     Active Substance: SULFASALAZINE
  14. ATORVASTATIN [Concomitant]
     Active Substance: ATORVASTATIN
  15. HUMIRA [Suspect]
     Active Substance: ADALIMUMAB
     Dosage: ?          OTHER FREQUENCY:EVERY 10 DAYS;?
     Route: 058
  16. LEVOTHYROXINE. [Concomitant]
     Active Substance: LEVOTHYROXINE
  17. LISINOPRIL. [Concomitant]
     Active Substance: LISINOPRIL
  18. PREDNISONE. [Concomitant]
     Active Substance: PREDNISONE

REACTIONS (2)
  - Cardiac disorder [None]
  - Lung disorder [None]

NARRATIVE: CASE EVENT DATE: 20210315
